FAERS Safety Report 8072113-7 (Version None)
Quarter: 2012Q1

REPORT INFORMATION
  Report Type: 
  Country: None (occurrence: None)
  Receive Date: 20120126
  Receipt Date: 20120119
  Transmission Date: 20120608
  Serious: Yes (Hospitalization, Other)
  Sender: FDA-Public Use
  Company Number: US-CELGENEUS-163-21880-11063469

PATIENT
  Sex: Male
  Weight: 64.014 kg

DRUGS (23)
  1. REVLIMID [Suspect]
     Dosage: 15 MILLIGRAM
     Route: 048
     Dates: start: 20100117, end: 20100101
  2. TOPROL-XL [Concomitant]
     Dosage: 25 MILLIGRAM
     Route: 048
  3. METOPROLOL SUCCINATE [Concomitant]
     Dosage: 25 MILLIGRAM
     Route: 048
  4. VITAMIN D [Concomitant]
     Dosage: 1000 UNIT
     Route: 048
  5. VELCADE [Concomitant]
     Dosage: 2.2 MILLIGRAM
     Route: 041
     Dates: start: 20110914
  6. BORTEZOMIB [Concomitant]
     Indication: MULTIPLE MYELOMA
     Route: 065
     Dates: start: 20110623
  7. AVODART [Concomitant]
     Dosage: .5 MILLIGRAM
     Route: 048
  8. REVLIMID [Suspect]
     Dosage: 10 MILLIGRAM
     Route: 048
     Dates: start: 20110712
  9. VELCADE [Concomitant]
     Indication: MULTIPLE MYELOMA
     Route: 041
     Dates: start: 20110623
  10. REVLIMID [Suspect]
     Dosage: 15 MILLIGRAM
     Route: 048
     Dates: start: 20110501, end: 20110601
  11. SULFAMETHOXAZOLE AND TRIMETHOPRIM [Concomitant]
     Dosage: 800/160MG
     Route: 048
  12. REVLIMID [Suspect]
     Dosage: 10 MILLIGRAM
     Route: 048
     Dates: start: 20110301, end: 20110517
  13. COUMADIN [Concomitant]
     Dosage: .5 MILLIGRAM
     Route: 048
  14. DEXAMETHASONE [Concomitant]
     Indication: MULTIPLE MYELOMA
     Dosage: 40 MILLIGRAM
     Route: 048
     Dates: start: 20090609
  15. DEXAMETHASONE [Concomitant]
     Dosage: 40 MILLIGRAM
     Route: 048
     Dates: start: 20111006
  16. SULFAMETIX [Concomitant]
     Dosage: 800/160MG
     Route: 065
  17. ALLOPURINOL [Concomitant]
     Dosage: 100 MILLIGRAM
     Route: 048
  18. STARLIX [Concomitant]
     Dosage: 120 MILLIGRAM
     Route: 048
  19. DIOVAN [Concomitant]
     Dosage: 160 MILLIGRAM
     Route: 048
  20. REVLIMID [Suspect]
     Dosage: 10MG-5MG
     Route: 048
     Dates: start: 20100401
  21. COUMADIN [Concomitant]
     Indication: PROPHYLAXIS
     Dosage: 1 MILLIGRAM
     Route: 048
     Dates: start: 20101202
  22. VELCADE [Concomitant]
     Dosage: 1.7 MILLIGRAM
     Route: 041
     Dates: start: 20111001
  23. ZOMETA [Concomitant]
     Route: 065
     Dates: start: 20111027

REACTIONS (8)
  - PNEUMONIA [None]
  - ATRIOVENTRICULAR BLOCK [None]
  - NEUROPATHY PERIPHERAL [None]
  - LOSS OF CONSCIOUSNESS [None]
  - COMPRESSION FRACTURE [None]
  - PULMONARY EMBOLISM [None]
  - HAEMOGLOBIN DECREASED [None]
  - THROMBOCYTOPENIA [None]
